FAERS Safety Report 4449414-4 (Version None)
Quarter: 2004Q3

REPORT INFORMATION
  Report Type: 
  Country: None (occurrence: None)
  Receive Date: 20040914
  Receipt Date: 20040831
  Transmission Date: 20050211
  Serious: Yes (Other)
  Sender: FDA-Public Use
  Company Number: TEST00204003039

PATIENT
  Age: 34 Year
  Sex: Male

DRUGS (5)
  1. ANDROGEL [Suspect]
     Indication: BLOOD TESTOSTERONE DECREASED
     Dosage: UNK DAILY, TD
     Route: 062
     Dates: start: 20040101
  2. SUSTIVA [Concomitant]
  3. LAMIVUDINE [Concomitant]
  4. STAVUDINE [Concomitant]
  5. MULTI-VITAMINS [Concomitant]

REACTIONS (10)
  - CHEST PAIN [None]
  - DIARRHOEA [None]
  - ELECTROCARDIOGRAM ST SEGMENT ELEVATION [None]
  - HYPERHIDROSIS [None]
  - PAIN [None]
  - PALPITATIONS [None]
  - PERICARDIAL EFFUSION [None]
  - STOMACH DISCOMFORT [None]
  - TACHYCARDIA [None]
  - VIRAL PERICARDITIS [None]
